FAERS Safety Report 8923366 (Version 1)
Quarter: 2012Q4

REPORT INFORMATION
  Report Type: 
  Country: FR (occurrence: FR)
  Receive Date: 20121124
  Receipt Date: 20121124
  Transmission Date: 20130627
  Serious: Yes (Death, Hospitalization, Other)
  Sender: FDA-Public Use
  Company Number: PHHY2012FR106742

PATIENT
  Age: 92 Year
  Sex: Female

DRUGS (13)
  1. LEPONEX [Suspect]
     Indication: PSYCHOTIC DISORDER
     Dosage: 25 mg, QD
     Route: 048
     Dates: end: 20121008
  2. LEPONEX [Suspect]
     Dosage: 42.5 mg, daily
  3. LEPONEX [Suspect]
     Dosage: 25 mg, (05 DF morning and 1 DF evening)
     Route: 048
     Dates: start: 20121008, end: 20121018
  4. EBIXA [Suspect]
     Indication: DEMENTIA ALZHEIMER^S TYPE
     Dosage: 10 mg, BID
     Route: 048
     Dates: end: 20121018
  5. ARICEPT [Suspect]
     Indication: DEMENTIA ALZHEIMER^S TYPE
     Dosage: 5 mg, QD
     Route: 048
     Dates: end: 20121018
  6. XANAX [Suspect]
     Indication: ANXIETY
     Dosage: 2 DF, QD
     Route: 048
     Dates: end: 20121018
  7. IMOVANE [Suspect]
     Indication: INSOMNIA
     Dosage: 7.5 mg, QD
     Route: 048
     Dates: end: 20121018
  8. ALDACTONE [Concomitant]
     Dosage: 50 mg, QD
     Dates: end: 20121018
  9. LOXEN LP [Concomitant]
     Dosage: 50 mg, BID
     Dates: end: 20121018
  10. DOLIPRANE [Concomitant]
     Dosage: 1 g, BID
     Dates: end: 20121018
  11. MEDIATENSYL [Concomitant]
     Dosage: 60 mg, QD
     Dates: end: 20121018
  12. FUROSEMIDE [Concomitant]
     Dosage: 20 mg, QD
     Dates: end: 20121018
  13. ASPEGIC [Concomitant]
     Dosage: 100 mg, QD
     Dates: end: 20121018

REACTIONS (16)
  - Hypothermia [Fatal]
  - Antipsychotic drug level increased [Fatal]
  - Extrapyramidal disorder [Fatal]
  - Dysphagia [Fatal]
  - Confusional state [Fatal]
  - Altered state of consciousness [Fatal]
  - Convulsion [Fatal]
  - Bradycardia [Fatal]
  - Pneumonia aspiration [Fatal]
  - Hyperkalaemia [Unknown]
  - Blood albumin decreased [Unknown]
  - Hyponatraemia [Unknown]
  - Pyelonephritis [Unknown]
  - Neurodegenerative disorder [Not Recovered/Not Resolved]
  - Renal failure [Unknown]
  - Leukocytosis [Unknown]
